FAERS Safety Report 6154506-8 (Version None)
Quarter: 2009Q2

REPORT INFORMATION
  Report Type: 
  Country: None (occurrence: None)
  Receive Date: 20090410
  Receipt Date: 20090410
  Transmission Date: 20091009
  Serious: No
  Sender: FDA-Public Use
  Company Number: None

PATIENT
  Sex: Female
  Weight: 41.82 kg

DRUGS (16)
  1. LOVASTATIN [Suspect]
     Dosage: 20MG TABLET QHS ORAL
     Route: 048
     Dates: start: 20080609, end: 20090409
  2. ACYCLOVIR [Concomitant]
  3. BONIVA [Concomitant]
  4. CALCIUM CARBONATE VIT D [Concomitant]
  5. CHANTIX [Concomitant]
  6. EPIPEN (EPINEPHRINE AUTOINJECTOR) [Concomitant]
  7. ERGOCALCLFEROL [Concomitant]
  8. HYDROCHLOROTHIAZIDE [Concomitant]
  9. HYDROCORTISONE [Concomitant]
  10. HYDROXYZINE HCL [Concomitant]
  11. LIDODERM [Concomitant]
  12. LISINOPRIL [Concomitant]
  13. METHADONE HCL [Concomitant]
  14. TAMOXIFEN CITRATE [Concomitant]
  15. TIZANIDINE HCL [Concomitant]
  16. TYLENOL (CAPLET) [Concomitant]

REACTIONS (1)
  - MYALGIA [None]
